FAERS Safety Report 9842826 (Version 2)
Quarter: 2014Q1

REPORT INFORMATION
  Report Type: Spontaneous
  Country: US (occurrence: US)
  Receive Date: 20140124
  Receipt Date: 20140124
  Transmission Date: 20141002
  Serious: Yes (Death, Hospitalization)
  Sender: FDA-Public Use
  Company Number: US-BAXTER-2013BAX053087

PATIENT
  Sex: Female

DRUGS (1)
  1. DIANEAL LOW CALCIUM [Suspect]
     Indication: PERITONEAL DIALYSIS
     Route: 033
     Dates: end: 20140113

REACTIONS (5)
  - Renal failure [Fatal]
  - Respiratory arrest [Fatal]
  - Liver disorder [Fatal]
  - Cardiac failure [Fatal]
  - Peritonitis bacterial [Not Recovered/Not Resolved]
